FAERS Safety Report 12080634 (Version 4)
Quarter: 2016Q2

REPORT INFORMATION
  Report Type: Spontaneous
  Country: US (occurrence: US)
  Receive Date: 20160216
  Receipt Date: 20160608
  Transmission Date: 20160815
  Serious: Yes (Other)
  Sender: FDA-Public Use
  Company Number: US-BAYER-2016-025329

PATIENT
  Age: 71 Year
  Sex: Male

DRUGS (2)
  1. GADAVIST [Suspect]
     Active Substance: GADOBUTROL
     Indication: NUCLEAR MAGNETIC RESONANCE IMAGING BRAIN
     Dosage: UNK, ONCE
     Dates: start: 20151022, end: 20151022
  2. GADAVIST [Suspect]
     Active Substance: GADOBUTROL
     Indication: BALANCE DISORDER

REACTIONS (28)
  - Cognitive disorder [Not Recovered/Not Resolved]
  - Headache [Not Recovered/Not Resolved]
  - Feeling hot [Not Recovered/Not Resolved]
  - Middle insomnia [None]
  - Head discomfort [Not Recovered/Not Resolved]
  - Yawning [Not Recovered/Not Resolved]
  - Tension headache [Not Recovered/Not Resolved]
  - Disturbance in attention [Not Recovered/Not Resolved]
  - Feeling hot [None]
  - Fatigue [Not Recovered/Not Resolved]
  - Dizziness [None]
  - Disturbance in attention [None]
  - Mental disorder [None]
  - Headache [None]
  - Dizziness [None]
  - Headache [None]
  - Musculoskeletal stiffness [Not Recovered/Not Resolved]
  - Headache [None]
  - Feeling abnormal [None]
  - Medication residue present [None]
  - Feeling hot [None]
  - Head discomfort [None]
  - Blood pressure increased [None]
  - Pollakiuria [None]
  - Asthenia [None]
  - Activities of daily living impaired [None]
  - Balance disorder [None]
  - Tension [None]

NARRATIVE: CASE EVENT DATE: 201510
